FAERS Safety Report 5989679-0 (Version None)
Quarter: 2008Q4

REPORT INFORMATION
  Report Type: 
  Country: None (occurrence: None)
  Receive Date: 20081208
  Receipt Date: 20081201
  Transmission Date: 20090506
  Serious: Yes (Hospitalization)
  Sender: FDA-Public Use
  Company Number: DSA_32794_2008

PATIENT
  Sex: Female

DRUGS (7)
  1. LORAZEPAM [Suspect]
     Dosage: (20 MG 1X, NOT THE PRESCRIBED AMOUNT ORAL)
     Route: 048
     Dates: start: 20081130, end: 20081130
  2. CARBAMAZEPINE [Suspect]
     Dosage: 6000 MG 1X, NOT THE PRESCRIBED AMOUNT ORAL)
     Route: 048
     Dates: start: 20081130, end: 20081130
  3. DIAZEPAM [Suspect]
     Dosage: 20 MG 1X, NOT THE PRESCRIBED AMOUNT ORAL)
     Route: 048
     Dates: start: 20081130, end: 20081130
  4. LEVOPROMAZIN (LEVOPROMAZIN - LEVOMEPROMAZINE) [Suspect]
     Dosage: 1750 MG 1X, NOT THE PRESCRIBED AMOUNT ORAL
     Route: 048
     Dates: start: 20081130, end: 20081130
  5. LYRICA [Suspect]
     Dosage: 1050 MG 1X, NOT THE PRESCRIBED AMOUNT ORAL
     Route: 048
     Dates: start: 20081130, end: 20081130
  6. OPIPRAMOL (OPIPRAMOL ) [Suspect]
     Dosage: 500 MG 1X, NOT THE PRESCRIBED AMOUNT ORAL
     Route: 048
     Dates: start: 20081130, end: 20081130
  7. SEROQUEL [Suspect]
     Dosage: 3000 MG 1X, NOT THE PRESCRIBED AMOUNT ORAL
     Route: 048
     Dates: start: 20081130, end: 20081130

REACTIONS (4)
  - COMA [None]
  - INTENTIONAL OVERDOSE [None]
  - SUICIDE ATTEMPT [None]
  - TACHYCARDIA [None]
